FAERS Safety Report 14784686 (Version 1)
Quarter: 2018Q2

REPORT INFORMATION
  Report Type: Report from Study
  Country: US (occurrence: US)
  Receive Date: 20180420
  Receipt Date: 20180420
  Transmission Date: 20180711
  Serious: Yes (Hospitalization)
  Sender: FDA-Public Use
  Company Number: US-EXELIXIS-CABO-18013521

PATIENT
  Sex: Male

DRUGS (1)
  1. CABOMETYX [Suspect]
     Active Substance: CABOZANTINIB S-MALATE
     Indication: THYROID CANCER
     Dosage: 60 MG, QD
     Route: 048
     Dates: end: 20180406

REACTIONS (4)
  - Pneumonia [Not Recovered/Not Resolved]
  - Vocal cord paralysis [Unknown]
  - Pulmonary oedema [Not Recovered/Not Resolved]
  - Off label use [Unknown]
